FAERS Safety Report 11792183 (Version 1)
Quarter: 2015Q4

REPORT INFORMATION
  Report Type: Spontaneous
  Country: US (occurrence: US)
  Receive Date: 20151201
  Receipt Date: 20151201
  Transmission Date: 20160305
  Serious: Yes (Other)
  Sender: FDA-Public Use
  Company Number: US-CELGENE-USA-2015116408

PATIENT

DRUGS (2)
  1. AZACITIDINE INJECTABLE [Suspect]
     Active Substance: AZACITIDINE
     Indication: MYELODYSPLASTIC SYNDROME
     Route: 041
  2. BIRINAPANT [Suspect]
     Active Substance: BIRINAPANT
     Indication: MYELODYSPLASTIC SYNDROME
     Route: 041

REACTIONS (7)
  - Syncope [Unknown]
  - Neutropenia [Unknown]
  - IVth nerve paralysis [Unknown]
  - Lipase increased [Unknown]
  - Fatigue [Unknown]
  - Thrombocytopenia [Unknown]
  - Anaemia [Unknown]
